FAERS Safety Report 26102125 (Version 1)
Quarter: 2025Q4

REPORT INFORMATION
  Report Type: Spontaneous
  Country: GB (occurrence: None)
  Receive Date: 20251128
  Receipt Date: 20251128
  Transmission Date: 20260118
  Serious: Yes (Other)
  Sender: ORGANON
  Company Number: None

PATIENT
  Age: 23 Year

DRUGS (17)
  1. MONTELUKAST [Suspect]
     Active Substance: MONTELUKAST
     Dosage: AT NIGHT
  2. QUETIAPINE [Concomitant]
     Active Substance: QUETIAPINE
     Dosage: ONE TO BE TAKEN TWICE A DAY
  3. DOCUSATE [Concomitant]
     Active Substance: DOCUSATE
     Dosage: TAKE TWO BD
  4. LAMOTRIGINE [Concomitant]
     Active Substance: LAMOTRIGINE
     Dosage: ONE BD
  5. BECLOMETHASONE DIPROPIONATE\FORMOTEROL FUMARATE\GLYCOPYRROLATE [Concomitant]
     Active Substance: BECLOMETHASONE DIPROPIONATE\FORMOTEROL FUMARATE\GLYCOPYRROLATE
     Dosage: TWO PUFFS TO BE INHALED TWICE A DAY
  6. NICOTINE [Concomitant]
     Active Substance: NICOTINE
     Dosage: UNK (MOUTHSPRAY) TO BE USED AS DIRECTED
  7. FEXOFENADINE [Concomitant]
     Active Substance: FEXOFENADINE HYDROCHLORIDE
     Dosage: ONE TO BE TAKEN EACH DAY
  8. FOLIC ACID [Concomitant]
     Active Substance: FOLIC ACID
     Dosage: ONE TO BE TAKEN EACH DAY
  9. SERTRALINE [Concomitant]
     Active Substance: SERTRALINE HYDROCHLORIDE
     Dosage: TWO TABLETS ONCE PER DAY
  10. ALBUTEROL [Concomitant]
     Active Substance: ALBUTEROL
     Dosage: TWO PUFFS AS REQUIRED (PRN)  (INHALER)
  11. NICOTINE [Concomitant]
     Active Substance: NICOTINE
     Dosage: 21 MG / 24 HOURS TRANSDERMAL PATCHES APPLY ONE PATCH EACH DAY AS DIRECTED
  12. CLOBAZAM [Concomitant]
     Active Substance: CLOBAZAM
     Dosage: ONE TABLET THREE TIMES DAILY
  13. FLUTICASONE FUROATE [Concomitant]
     Active Substance: FLUTICASONE FUROATE
     Dosage: ONE SPRAY TO BE USED IN EACH NOSTRIL ONCE A DAY, OR AS DIRECTED BY ASTHMA CLINIC
  14. FERROUS FUMARATE [Concomitant]
     Active Substance: FERROUS FUMARATE
     Dosage: ONE TO BE TAKEN EACH DAY
  15. LORAZEPAM [Concomitant]
     Active Substance: LORAZEPAM
     Indication: Muscle spasms
     Dosage: ONE PRN MAX QDS
  16. LORAZEPAM [Concomitant]
     Active Substance: LORAZEPAM
     Indication: Throat tightness
  17. LAMOTRIGINE [Concomitant]
     Active Substance: LAMOTRIGINE
     Dosage: ONE TO BE TAKEN EACH DAY AT NIGHT

REACTIONS (1)
  - Bipolar disorder [Unknown]
